FAERS Safety Report 10589852 (Version 1)
Quarter: 2014Q4

REPORT INFORMATION
  Report Type: Spontaneous
  Country: FR (occurrence: FR)
  Receive Date: 20141118
  Receipt Date: 20141118
  Transmission Date: 20150529
  Serious: Yes (Hospitalization)
  Sender: FDA-Public Use
  Company Number: FR-SA-2014SA154157

PATIENT
  Age: 67 Year
  Sex: Male

DRUGS (15)
  1. TAMSULOSIN HYDROCHLORIDE. [Concomitant]
     Active Substance: TAMSULOSIN HYDROCHLORIDE
     Route: 048
     Dates: start: 201302
  2. BISOPROLOL [Concomitant]
     Active Substance: BISOPROLOL
     Route: 048
     Dates: start: 201302
  3. TAHOR [Concomitant]
     Active Substance: ATORVASTATIN CALCIUM
     Route: 048
     Dates: start: 201302
  4. MOPRAL [Concomitant]
     Active Substance: OMEPRAZOLE SODIUM
     Indication: BACK PAIN
     Route: 048
     Dates: start: 20140430
  5. PERINDOPRIL [Concomitant]
     Active Substance: PERINDOPRIL
     Dosage: STRENGTH:8 MG
     Route: 048
  6. CALCIUM CHANNEL BLOCKERS [Concomitant]
     Active Substance: UNSPECIFIED INGREDIENT
     Dosage: STRENGTH: 10 MG
     Route: 048
  7. VICTOZA [Concomitant]
     Active Substance: LIRAGLUTIDE
     Dosage: STRENGTH: 6 MG/ML
     Route: 058
     Dates: start: 201302
  8. FUROSEMIDE. [Suspect]
     Active Substance: FUROSEMIDE
     Route: 048
  9. FUROSEMIDE. [Suspect]
     Active Substance: FUROSEMIDE
     Route: 048
  10. DAFALGAN CODEINE [Concomitant]
     Active Substance: ACETAMINOPHEN\CODEINE PHOSPHATE
     Indication: BACK PAIN
     Route: 048
     Dates: start: 20140430, end: 20140511
  11. PLAVIX [Suspect]
     Active Substance: CLOPIDOGREL BISULFATE
     Route: 048
  12. KETOPROFENE [Suspect]
     Active Substance: KETOPROFEN
     Route: 048
     Dates: start: 20140430, end: 20140511
  13. INSPRA [Concomitant]
     Active Substance: EPLERENONE
     Dosage: STRENGTH: 25 MG, 12;5 MG
     Route: 048
     Dates: start: 201302
  14. METFORMIN [Concomitant]
     Active Substance: METFORMIN HYDROCHLORIDE
     Dosage: STRENGTH: 850 MG
     Route: 048
     Dates: start: 201302
  15. DIAMICRON [Concomitant]
     Active Substance: GLICLAZIDE
     Route: 048
     Dates: start: 201302

REACTIONS (2)
  - Cardiac failure [Recovered/Resolved]
  - Acute pulmonary oedema [Recovered/Resolved]

NARRATIVE: CASE EVENT DATE: 20140511
